FAERS Safety Report 22358288 (Version 2)
Quarter: 2023Q2

REPORT INFORMATION
  Report Type: Spontaneous
  Country: FR (occurrence: FR)
  Receive Date: 20230524
  Receipt Date: 20230630
  Transmission Date: 20230722
  Serious: Yes (Death, Other)
  Sender: FDA-Public Use
  Company Number: FR-AMGEN-FRASP2023086345

PATIENT

DRUGS (1)
  1. ADALIMUMAB [Suspect]
     Active Substance: ADALIMUMAB
     Indication: Exposure during pregnancy
     Dosage: UNK
     Route: 064

REACTIONS (7)
  - Foetal death [Fatal]
  - Foetal growth restriction [Unknown]
  - Congenital hypothyroidism [Unknown]
  - Talipes [Unknown]
  - Hypospadias [Unknown]
  - Transposition of the great vessels [Unknown]
  - Atrioventricular septal defect [Unknown]
